FAERS Safety Report 9486750 (Version 1)
Quarter: 2013Q3

REPORT INFORMATION
  Report Type: Spontaneous
  Country: US (occurrence: US)
  Receive Date: 20130829
  Receipt Date: 20130829
  Transmission Date: 20140515
  Serious: No
  Sender: FDA-Public Use
  Company Number: US-BRISTOL-MYERS SQUIBB COMPANY-19071836

PATIENT
  Sex: 0

DRUGS (1)
  1. KOMBIGLYZE XR [Suspect]

REACTIONS (2)
  - Pubic pain [Unknown]
  - Proctalgia [Unknown]
